FAERS Safety Report 6010886-5 (Version None)
Quarter: 2008Q4

REPORT INFORMATION
  Report Type: 
  Country: None (occurrence: None)
  Receive Date: 20081217
  Receipt Date: 20081217
  Transmission Date: 20090506
  Serious: Yes (Other)
  Sender: FDA-Public Use
  Company Number: None

PATIENT
  Sex: Female
  Weight: 53.5244 kg

DRUGS (1)
  1. LEVETIRACETAM [Suspect]
     Dosage: 3 TABLETS TWICE DAILY
     Dates: start: 20081128, end: 20081201

REACTIONS (5)
  - BACK PAIN [None]
  - BONE DISORDER [None]
  - CONVULSION [None]
  - LACERATION [None]
  - THERAPEUTIC RESPONSE UNEXPECTED WITH DRUG SUBSTITUTION [None]
